FAERS Safety Report 15208984 (Version 2)
Quarter: 2018Q3

REPORT INFORMATION
  Report Type: Report from Study
  Country: US (occurrence: US)
  Receive Date: 20180727
  Receipt Date: 20180823
  Transmission Date: 20181010
  Serious: Yes (Death, Hospitalization)
  Sender: FDA-Public Use
  Company Number: US-ROCHE-2158849

PATIENT
  Age: 36 Year
  Sex: Female
  Weight: 42 kg

DRUGS (1)
  1. VISMODEGIB. [Suspect]
     Active Substance: VISMODEGIB
     Indication: OVARIAN CANCER
     Dosage: DATE OF LAST DOSE ADMINISTERED PRIOR TO SAE: 26/JUN/2018
     Route: 048
     Dates: start: 20180510

REACTIONS (2)
  - Fatigue [Unknown]
  - Acute kidney injury [Not Recovered/Not Resolved]

NARRATIVE: CASE EVENT DATE: 20180626
